FAERS Safety Report 8001760-3 (Version None)
Quarter: 2011Q4

REPORT INFORMATION
  Report Type: 
  Country: None (occurrence: None)
  Receive Date: 20111222
  Receipt Date: 20111207
  Transmission Date: 20120403
  Serious: Yes (Other)
  Sender: FDA-Public Use
  Company Number: FR-ROCHE-771706

PATIENT

DRUGS (3)
  1. MABTHERA [Suspect]
     Indication: DIFFUSE LARGE B-CELL LYMPHOMA
     Route: 042
  2. INTERFERON ALFA-2B [Suspect]
     Indication: DIFFUSE LARGE B-CELL LYMPHOMA
     Dosage: 1.5 MILLION UL X 3/WK IN CYCLE 1, 3 MILLION X 3/WK IN CYCLE 2
     Route: 058
  3. ALDESLEUKIN [Suspect]
     Indication: DIFFUSE LARGE B-CELL LYMPHOMA
     Dosage: 6 MILLION UL X 3/WK IN CYCLE 1, 9 MILLION X 3/WK ON CYCLE 2
     Route: 058

REACTIONS (3)
  - NEUTROPENIA [None]
  - HYPOTHYROIDISM [None]
  - ANAEMIA [None]
